FAERS Safety Report 8305090-1 (Version None)
Quarter: 2012Q2

REPORT INFORMATION
  Report Type: 
  Country: None (occurrence: None)
  Receive Date: 20120423
  Receipt Date: 20120416
  Transmission Date: 20120825
  Serious: Yes (Hospitalization, Disabling, Other)
  Sender: FDA-Public Use
  Company Number: AT-ASTRAZENECA-2012SE06727

PATIENT
  Age: 68 Year
  Sex: Female
  Weight: 54 kg

DRUGS (14)
  1. AMLODIPINE [Concomitant]
  2. HEPARIN [Concomitant]
  3. PRASUGREL [Concomitant]
  4. RABEPRAZOLE SODIUM [Concomitant]
  5. LEVOFLOXACIN [Concomitant]
     Dosage: 500 TWO TIMES A DAY
  6. DANCOR [Concomitant]
  7. MOLSIDOLAT [Concomitant]
  8. ASPIRIN [Concomitant]
  9. BISOPROLOL FUMARATE [Concomitant]
  10. BRILIQUE [Suspect]
     Indication: ARTERIAL STENT INSERTION
     Route: 048
     Dates: start: 20111122, end: 20111202
  11. CANDESARTAN CILEXETIL [Concomitant]
  12. ATORVASTATIN CALCIUM [Concomitant]
  13. RANEXA [Concomitant]
  14. ISONOX [Concomitant]
     Dosage: 20 IN THE MORNING

REACTIONS (3)
  - VISUAL IMPAIRMENT [None]
  - VERTIGO [None]
  - HAEMORRHAGIC TRANSFORMATION STROKE [None]
